FAERS Safety Report 6368919-2 (Version None)
Quarter: 2009Q3

REPORT INFORMATION
  Report Type: 
  Country: None (occurrence: None)
  Receive Date: 20090917
  Receipt Date: 20090917
  Transmission Date: 20100115
  Serious: Yes (Disabling)
  Sender: FDA-Public Use
  Company Number: None

PATIENT
  Age: 18 Year
  Sex: Male

DRUGS (1)
  1. ZYPREXA ZYDIS [Suspect]

REACTIONS (7)
  - BLOOD PRESSURE SYSTOLIC INCREASED [None]
  - FALL [None]
  - HALLUCINATION, AUDITORY [None]
  - HEAD INJURY [None]
  - PARANOIA [None]
  - PSYCHIATRIC SYMPTOM [None]
  - TONIC CONVULSION [None]
